FAERS Safety Report 13658559 (Version 1)
Quarter: 2017Q2

REPORT INFORMATION
  Report Type: Spontaneous
  Country: US (occurrence: US)
  Receive Date: 20170616
  Receipt Date: 20170616
  Transmission Date: 20170830
  Serious: No
  Sender: FDA-Public Use
  Company Number: US-PFIZER INC-2017263086

PATIENT
  Age: 62 Year
  Sex: Male
  Weight: 128.8 kg

DRUGS (3)
  1. CAMPTOSAR [Suspect]
     Active Substance: IRINOTECAN HYDROCHLORIDE
     Indication: HEPATIC CANCER
  2. CAMPTOSAR [Suspect]
     Active Substance: IRINOTECAN HYDROCHLORIDE
     Indication: LUNG NEOPLASM MALIGNANT
  3. CAMPTOSAR [Suspect]
     Active Substance: IRINOTECAN HYDROCHLORIDE
     Indication: COLON CANCER
     Dosage: UNK

REACTIONS (7)
  - Malaise [Unknown]
  - Weight decreased [Unknown]
  - Mouth ulceration [Unknown]
  - Rash [Unknown]
  - Pruritus [Unknown]
  - Neoplasm progression [Unknown]
  - Nausea [Unknown]

NARRATIVE: CASE EVENT DATE: 201510
